FAERS Safety Report 13388748 (Version 1)
Quarter: 2017Q1

REPORT INFORMATION
  Report Type: Report from Study
  Country: CA (occurrence: CA)
  Receive Date: 20170330
  Receipt Date: 20170330
  Transmission Date: 20170429
  Serious: Yes (Other)
  Sender: FDA-Public Use
  Company Number: CA-AMGEN-CANSL2017045693

PATIENT
  Age: 26 Year
  Sex: Female

DRUGS (3)
  1. ZOVIRAX [Concomitant]
     Active Substance: ACYCLOVIR
     Indication: HERPES VIRUS INFECTION
  2. SYMBICORT [Concomitant]
     Active Substance: BUDESONIDE\FORMOTEROL FUMARATE DIHYDRATE
     Indication: ASTHMA
  3. NEUPOGEN [Suspect]
     Active Substance: FILGRASTIM
     Indication: CONGENITAL APLASTIC ANAEMIA
     Dosage: 300 MUG, (EVERY 3 DAYS)
     Route: 065
     Dates: start: 2002

REACTIONS (4)
  - Lip and/or oral cavity cancer [Not Recovered/Not Resolved]
  - Cystitis [Not Recovered/Not Resolved]
  - Off label use [Unknown]
  - Lung infection [Not Recovered/Not Resolved]

NARRATIVE: CASE EVENT DATE: 2002
